FAERS Safety Report 15707874 (Version 1)
Quarter: 2018Q4

REPORT INFORMATION
  Report Type: Spontaneous
  Country: AT (occurrence: AT)
  Receive Date: 20181211
  Receipt Date: 20181211
  Transmission Date: 20190205
  Serious: Yes (Other)
  Sender: FDA-Public Use
  Company Number: AT-009507513-1812AUT003125

PATIENT
  Age: 30 Year
  Sex: Male

DRUGS (2)
  1. PEMBROLIZUMAB. [Suspect]
     Active Substance: PEMBROLIZUMAB
     Indication: ADENOCARCINOMA GASTRIC
     Dosage: 200 MG EVERY 2 WEEKS; THREE CYCLES
     Dates: end: 201701
  2. PEMBROLIZUMAB. [Suspect]
     Active Substance: PEMBROLIZUMAB
     Dosage: UNK
     Dates: start: 201711

REACTIONS (3)
  - Therapeutic response changed [Unknown]
  - Tumour pseudoprogression [Unknown]
  - Product use issue [Unknown]

NARRATIVE: CASE EVENT DATE: 201701
